FAERS Safety Report 5078613-6 (Version None)
Quarter: 2006Q3

REPORT INFORMATION
  Report Type: 
  Country: None (occurrence: None)
  Receive Date: 20060810
  Receipt Date: 20060810
  Transmission Date: 20061208
  Serious: Yes (Disabling)
  Sender: FDA-Public Use
  Company Number: None

PATIENT
  Age: 25 Year
  Sex: Female
  Weight: 74.8435 kg

DRUGS (1)
  1. ZONEGRAN [Suspect]
     Indication: MIGRAINE
     Dosage: 100 MG DAILY PO
     Route: 048
     Dates: start: 20060807, end: 20060808

REACTIONS (4)
  - CHOROIDAL EFFUSION [None]
  - IMPAIRED DRIVING ABILITY [None]
  - IMPAIRED WORK ABILITY [None]
  - VISUAL DISTURBANCE [None]
